FAERS Safety Report 11729645 (Version 6)
Quarter: 2018Q4

REPORT INFORMATION
  Report Type: Spontaneous
  Country: US (occurrence: US)
  Receive Date: 20151112
  Receipt Date: 20181113
  Transmission Date: 20190204
  Serious: Yes (Hospitalization)
  Sender: FDA-Public Use
  Company Number: US-DSJP-DSU-2015-120105

PATIENT

DRUGS (6)
  1. MEVACOR [Concomitant]
     Active Substance: LOVASTATIN
     Indication: PRODUCT USED FOR UNKNOWN INDICATION
     Dosage: 20 MG, QD
     Dates: start: 200508
  2. ZEBETA [Concomitant]
     Active Substance: BISOPROLOL FUMARATE
     Indication: PRODUCT USED FOR UNKNOWN INDICATION
     Dosage: 5 MG, QD
     Dates: start: 201003, end: 201503
  3. BENICAR HCT [Suspect]
     Active Substance: HYDROCHLOROTHIAZIDE\OLMESARTAN MEDOXOMIL
     Dosage: 40/12.5 MG
     Dates: start: 200505, end: 200808
  4. BENICAR [Suspect]
     Active Substance: OLMESARTAN MEDOXOMIL
     Dosage: 40 MG, QD
     Route: 048
     Dates: start: 200808, end: 200912
  5. BENICAR [Suspect]
     Active Substance: OLMESARTAN MEDOXOMIL
     Indication: HYPERTENSION
     Dosage: 20 MG, UNK
     Dates: start: 20040405, end: 200505
  6. BENICAR HCT [Suspect]
     Active Substance: HYDROCHLOROTHIAZIDE\OLMESARTAN MEDOXOMIL
     Indication: HYPERTENSION
     Dosage: 20/12.5 MG
     Dates: start: 200505, end: 200808

REACTIONS (15)
  - Acute kidney injury [Unknown]
  - Haemorrhoids [Unknown]
  - Coeliac disease [Recovered/Resolved]
  - Colon adenoma [Unknown]
  - Autoimmune colitis [Unknown]
  - Hiatus hernia [Unknown]
  - Pancreatic failure [Unknown]
  - Diverticulum [Unknown]
  - Hypoaesthesia [Unknown]
  - Hypotension [Unknown]
  - Constipation [Unknown]
  - Osteoporosis [Unknown]
  - Impaired gastric emptying [Unknown]
  - Sprue-like enteropathy [Recovering/Resolving]
  - Gastrooesophageal reflux disease [Unknown]

NARRATIVE: CASE EVENT DATE: 20050622
